FAERS Safety Report 16795849 (Version 1)
Quarter: 2019Q3

REPORT INFORMATION
  Report Type: Spontaneous
  Country: JP (occurrence: JP)
  Receive Date: 20190911
  Receipt Date: 20190911
  Transmission Date: 20191005
  Serious: Yes (Hospitalization)
  Sender: FDA-Public Use
  Company Number: JP-EISAI MEDICAL RESEARCH-EC-2019-061689

PATIENT
  Age: 56 Year
  Sex: Male

DRUGS (9)
  1. REPATHA [Suspect]
     Active Substance: EVOLOCUMAB
     Indication: PRODUCT USED FOR UNKNOWN INDICATION
     Dosage: DOSE AND FREQUENCY UNKNOWN
     Route: 058
  2. CELLCEPT [Suspect]
     Active Substance: MYCOPHENOLATE MOFETIL\MYCOPHENOLATE MOFETIL HYDROCHLORIDE
     Indication: PRODUCT USED FOR UNKNOWN INDICATION
     Dosage: DOSE AND FREQUENCY UNKNOWN
     Route: 065
  3. GRACEPTOR [Suspect]
     Active Substance: TACROLIMUS
     Indication: PROPHYLAXIS AGAINST TRANSPLANT REJECTION
     Route: 065
  4. LIPITOR [Suspect]
     Active Substance: ATORVASTATIN CALCIUM
     Indication: PRODUCT USED FOR UNKNOWN INDICATION
     Dosage: DOSE AND FREQUENCY UNKNOWN
     Route: 065
  5. TRESIBA [Suspect]
     Active Substance: INSULIN DEGLUDEC
     Indication: PRODUCT USED FOR UNKNOWN INDICATION
     Dosage: DOSE AND FREQUENCY UNKNOWN
     Route: 065
  6. CERTICAN [Suspect]
     Active Substance: EVEROLIMUS
     Indication: PRODUCT USED FOR UNKNOWN INDICATION
     Dosage: DOSE AND FREQUENCY UNKNOWN
     Route: 065
  7. PREDNISOLONE. [Suspect]
     Active Substance: PREDNISOLONE
     Indication: PRODUCT USED FOR UNKNOWN INDICATION
     Dosage: DOSE AND FREQUENCY UNKNOWN
     Route: 065
  8. PARIET [Suspect]
     Active Substance: RABEPRAZOLE SODIUM
     Indication: PRODUCT USED FOR UNKNOWN INDICATION
     Dosage: DOSE AND FREQUENCY UNKNOWN
     Route: 048
  9. NOVORAPID [Suspect]
     Active Substance: INSULIN ASPART
     Indication: PRODUCT USED FOR UNKNOWN INDICATION
     Dosage: DOSE AND FREQUENCY UNKNOWN
     Route: 065

REACTIONS (1)
  - Cerebral infarction [Not Recovered/Not Resolved]

NARRATIVE: CASE EVENT DATE: 20190722
